FAERS Safety Report 5775561-0 (Version None)
Quarter: 2008Q2

REPORT INFORMATION
  Report Type: 
  Country: None (occurrence: None)
  Receive Date: 20080612
  Receipt Date: 20080529
  Transmission Date: 20081010
  Serious: Yes (Life-Threatening, Other)
  Sender: FDA-Public Use
  Company Number: S03-FRA-05167-01

PATIENT
  Age: 81 Year
  Sex: Male

DRUGS (3)
  1. MEMANTINE HCL [Suspect]
     Indication: DEMENTIA ALZHEIMER'S TYPE
     Dates: start: 20021201, end: 20030710
  2. TAMSULOSIN HCL [Suspect]
     Indication: PROSTATIC ADENOMA
     Dosage: PROSTATIC ADENOMA
     Dates: start: 20010401
  3. CLOPIDOGREL [Concomitant]

REACTIONS (4)
  - ATRIOVENTRICULAR BLOCK SECOND DEGREE [None]
  - BRADYCARDIA [None]
  - MALAISE [None]
  - SYNCOPE [None]
